FAERS Safety Report 24631198 (Version 1)
Quarter: 2024Q4

REPORT INFORMATION
  Report Type: Spontaneous
  Country: US (occurrence: None)
  Receive Date: 20241117
  Receipt Date: 20241117
  Transmission Date: 20250114
  Serious: Yes (Life-Threatening, Hospitalization, Disabling, Other)
  Sender: Public
  Company Number: None

PATIENT
  Age: 8 Year
  Sex: Female
  Weight: 40.5 kg

DRUGS (8)
  1. MONTELUKAST [Suspect]
     Active Substance: MONTELUKAST
     Indication: Asthma
     Dosage: 1 TABLET AT BEDTIME ORAL
     Route: 048
     Dates: start: 20240227, end: 20240401
  2. HUMIRA [Concomitant]
     Active Substance: ADALIMUMAB
  3. ZOLOFT [Concomitant]
     Active Substance: SERTRALINE HYDROCHLORIDE
  4. FLUTICASONE [Concomitant]
     Active Substance: FLUTICASONE
  5. XOPENEX [Concomitant]
     Active Substance: LEVALBUTEROL HYDROCHLORIDE
  6. MIRALAX [Concomitant]
  7. Probiotics [Concomitant]
  8. FIBERS [Concomitant]

REACTIONS (3)
  - Abnormal behaviour [None]
  - Suicidal ideation [None]
  - Self-destructive behaviour [None]

NARRATIVE: CASE EVENT DATE: 20240308
